FAERS Safety Report 6551917-3 (Version None)
Quarter: 2010Q1

REPORT INFORMATION
  Report Type: 
  Country: None (occurrence: None)
  Receive Date: 20100126
  Receipt Date: 20100114
  Transmission Date: 20100710
  Serious: Yes (Hospitalization)
  Sender: FDA-Public Use
  Company Number: IT-ELI_LILLY_AND_COMPANY-IT201001002573

PATIENT
  Sex: Female

DRUGS (13)
  1. ZYPREXA [Suspect]
     Dosage: 5 MG, DAILY (1/D)
     Route: 048
     Dates: end: 20091129
  2. ZYPREXA [Suspect]
     Dosage: 10 MG, DAILY (1/D)
     Route: 048
     Dates: start: 20091130, end: 20091203
  3. ZYPREXA [Suspect]
     Dosage: 5 MG, DAILY (1/D)
     Route: 048
     Dates: start: 20091201
  4. GABAPENTIN [Concomitant]
     Dosage: 200 MG, DAILY (1/D)
     Route: 048
     Dates: end: 20091129
  5. GABAPENTIN [Concomitant]
     Dosage: 300 MG, DAILY (1/D)
     Route: 048
     Dates: start: 20091130, end: 20091203
  6. GABAPENTIN [Concomitant]
     Dosage: 200 MG, DAILY (1/D)
     Route: 048
     Dates: start: 20091201
  7. LORAZEPAM [Concomitant]
     Dosage: UNK, UNKNOWN
     Route: 065
     Dates: start: 20081103, end: 20091203
  8. OXYCONTIN [Concomitant]
     Dosage: UNK, UNKNOWN
     Route: 065
     Dates: start: 20081203, end: 20091203
  9. DEPALGOS [Concomitant]
     Dosage: UNK, UNKNOWN
     Route: 065
     Dates: start: 20081203, end: 20091203
  10. LEVODOPA [Concomitant]
     Dosage: UNK, UNKNOWN
     Route: 065
     Dates: end: 20091201
  11. LEVODOPA [Concomitant]
     Dosage: UNK, UNKNOWN
     Route: 065
     Dates: start: 20091201
  12. CARBIDOPA [Concomitant]
     Dosage: UNK, UNKNOWN
     Route: 065
     Dates: end: 20091201
  13. CARBIDOPA [Concomitant]
     Dosage: UNK, UNKNOWN
     Route: 065
     Dates: start: 20091201

REACTIONS (1)
  - PSYCHOMOTOR RETARDATION [None]
